FAERS Safety Report 5868196-2 (Version None)
Quarter: 2008Q3

REPORT INFORMATION
  Report Type: 
  Country: None (occurrence: None)
  Receive Date: 20080902
  Receipt Date: 20080826
  Transmission Date: 20090109
  Serious: Yes (Hospitalization)
  Sender: FDA-Public Use
  Company Number: BR-ABBOTT-08P-020-0472628-00

PATIENT
  Age: 50 Year
  Sex: Female
  Weight: 65 kg

DRUGS (5)
  1. HUMIRA [Suspect]
     Indication: RHEUMATOID ARTHRITIS
     Dosage: ONLY HAD ONE DOSE ABOUT TWO WEEKS AGO
     Route: 058
     Dates: start: 20080801, end: 20080801
  2. PETHIDINE HYDROCHLORIDE [Interacting]
     Indication: MIGRAINE
  3. PREDNISONE TAB [Concomitant]
     Indication: RHEUMATOID ARTHRITIS
  4. CALCIUM-SANDOZ [Concomitant]
     Indication: RHEUMATOID ARTHRITIS
  5. OMEPRAZOLE [Concomitant]
     Indication: PROPHYLAXIS AGAINST GASTROINTESTINAL ULCER

REACTIONS (5)
  - DRUG INTERACTION [None]
  - MIGRAINE [None]
  - NAUSEA [None]
  - SYNCOPE [None]
  - VOMITING [None]
